FAERS Safety Report 5189473-7 (Version None)
Quarter: 2006Q4

REPORT INFORMATION
  Report Type: 
  Country: None (occurrence: None)
  Receive Date: 20061215
  Receipt Date: 20061205
  Transmission Date: 20070319
  Serious: Yes (Other)
  Sender: FDA-Public Use
  Company Number: 2006150289

PATIENT
  Age: 72 Year
  Sex: Female
  Weight: 108.8633 kg

DRUGS (1)
  1. NORVASC [Suspect]
     Indication: HYPERTENSION
     Dosage: 10 MG (5 MG, BID:  EVERY DAY)
     Dates: start: 20040801, end: 20040901

REACTIONS (12)
  - ASTHENIA [None]
  - BLOOD PRESSURE INCREASED [None]
  - CHROMATURIA [None]
  - DIZZINESS [None]
  - FEELING ABNORMAL [None]
  - HEADACHE [None]
  - MUSCLE SPASMS [None]
  - NAUSEA [None]
  - OCULAR ICTERUS [None]
  - OEDEMA PERIPHERAL [None]
  - SINUSITIS [None]
  - SURGERY [None]
